FAERS Safety Report 10753867 (Version 1)
Quarter: 2015Q1

REPORT INFORMATION
  Report Type: Spontaneous
  Country: US (occurrence: None)
  Receive Date: 20150129
  Receipt Date: 20150129
  Transmission Date: 20150721
  Serious: No
  Sender: FDA-Public Use
  Company Number: None

PATIENT
  Age: 62 Year
  Sex: Female
  Weight: 54.43 kg

DRUGS (3)
  1. AYGESTIN [Suspect]
     Active Substance: NORETHINDRONE ACETATE
     Indication: ABDOMINAL DISTENSION
  2. AYGESTIN [Suspect]
     Active Substance: NORETHINDRONE ACETATE
     Indication: MENORRHAGIA
  3. AYGESTIN [Suspect]
     Active Substance: NORETHINDRONE ACETATE
     Indication: MUSCLE SPASMS

REACTIONS (1)
  - Alopecia [None]
